FAERS Safety Report 4073216 (Version 2)
Quarter: 2013Q2

REPORT INFORMATION
  Report Type: Spontaneous
  Country: DE (occurrence: DE)
  Receive Date: 20040128
  Receipt Date: 20130627
  Transmission Date: 20140414
  Serious: Yes (Hospitalization)
  Sender: FDA-Public Use
  Company Number: PHBS2004DE00977

PATIENT
  Sex: Female
  Weight: 2.24 kg

DRUGS (1)
  1. CO-DIOVAN [Suspect]
     Dosage: 1 DF (80 MG VALS AND 12.5 MG HCTZ), PER DAY
     Route: 064

REACTIONS (17)
  - Cranial sutures widening [Unknown]
  - Joint contracture [Recovered/Resolved]
  - Electrolyte imbalance [Unknown]
  - Congenital cystic kidney disease [Unknown]
  - Renal dysplasia [Unknown]
  - Vena cava thrombosis [Unknown]
  - Finger deformity [Unknown]
  - Enlarged clitoris [Unknown]
  - Respiratory distress [Unknown]
  - Small for dates baby [Unknown]
  - Hypoalbuminaemia [Unknown]
  - Gene mutation [Unknown]
  - Renal failure [Not Recovered/Not Resolved]
  - Neonatal anuria [Unknown]
  - Nephrogenic anaemia [Unknown]
  - Pulmonary hypertension [Unknown]
  - Foetal exposure during pregnancy [Unknown]
